FAERS Safety Report 15697706 (Version 1)
Quarter: 2018Q4

REPORT INFORMATION
  Report Type: Spontaneous
  Country: FR (occurrence: FR)
  Receive Date: 20181207
  Receipt Date: 20181207
  Transmission Date: 20190205
  Serious: Yes (Death)
  Sender: FDA-Public Use
  Company Number: FR-TEVA-2018-FR-982651

PATIENT
  Age: 76 Year
  Sex: Male
  Weight: 73 kg

DRUGS (11)
  1. IMOVANE [Concomitant]
     Active Substance: ZOPICLONE
     Route: 065
  2. TAHOR [Concomitant]
     Active Substance: ATORVASTATIN CALCIUM
     Route: 065
  3. PANTOPRAZOLE [Concomitant]
     Active Substance: PANTOPRAZOLE
     Route: 065
  4. QUESTRAN [Concomitant]
     Active Substance: CHOLESTYRAMINE
     Route: 065
  5. CORGARD [Concomitant]
     Active Substance: NADOLOL
     Route: 065
  6. KARDEGIC [Suspect]
     Active Substance: ASPIRIN DL-LYSINE
     Indication: PROPHYLAXIS
     Dosage: 1 DOSAGE FORMS DAILY;
     Route: 048
     Dates: end: 20180217
  7. BRILIQUE 90 MG, COMPRIM? PELLICUL? [Suspect]
     Active Substance: TICAGRELOR
     Indication: PROPHYLAXIS
     Dosage: 2 DOSAGE FORMS DAILY;
     Route: 048
     Dates: start: 20170924, end: 20180217
  8. RAMIPRIL. [Concomitant]
     Active Substance: RAMIPRIL
     Route: 065
  9. FUROSEMIDE. [Concomitant]
     Active Substance: FUROSEMIDE
     Route: 065
  10. NEO-MERCAZOLE [Concomitant]
     Active Substance: CARBIMAZOLE
     Route: 065
  11. PREDNISONE. [Suspect]
     Active Substance: PREDNISONE
     Indication: HYPERTHYROIDISM
     Dosage: 40 MILLIGRAM DAILY;
     Route: 048

REACTIONS (3)
  - Shock haemorrhagic [Fatal]
  - Gastric ulcer haemorrhage [Fatal]
  - Anaemia [Fatal]

NARRATIVE: CASE EVENT DATE: 20180217
